FAERS Safety Report 4696388-7 (Version None)
Quarter: 2005Q2

REPORT INFORMATION
  Report Type: 
  Country: None (occurrence: None)
  Receive Date: 20050620
  Receipt Date: 20050608
  Transmission Date: 20051028
  Serious: Yes (Other)
  Sender: FDA-Public Use
  Company Number: USA-2005-0020549

PATIENT
  Sex: Male
  Weight: 59 kg

DRUGS (6)
  1. OXYCONTIN [Suspect]
     Dosage: 80 MG, Q4H,
  2. DESOXYN [Suspect]
     Dosage: 30 MG, Q4H, ORAL
     Route: 048
  3. XANAX [Suspect]
     Dosage: 2 MG, UNK
  4. FENTANYL [Suspect]
     Dosage: 100 MCG,
  5. PRILOSEC [Suspect]
     Dosage: 40 MG, SEE TEXT,
  6. NEURONTIN [Suspect]
     Dosage: 300 MG, Q4H

REACTIONS (4)
  - FATIGUE [None]
  - LOSS OF CONSCIOUSNESS [None]
  - MURDER [None]
  - ROAD TRAFFIC ACCIDENT [None]
